FAERS Safety Report 7968107-X (Version None)
Quarter: 2011Q4

REPORT INFORMATION
  Report Type: 
  Country: None (occurrence: None)
  Receive Date: 20111207
  Receipt Date: 20111124
  Transmission Date: 20120403
  Serious: Yes (Other)
  Sender: FDA-Public Use
  Company Number: 2011AP001504

PATIENT
  Age: 61 Year
  Sex: Female

DRUGS (14)
  1. RAMIPRIL [Suspect]
     Indication: BLOOD PRESSURE
     Dosage: 0.75 MG ; 2.5 MG
     Dates: start: 20101206, end: 20101216
  2. RAMIPRIL [Suspect]
     Indication: BLOOD PRESSURE
     Dosage: 0.75 MG ; 2.5 MG
     Dates: start: 20101118
  3. BENDROFLUMETHIAZIDE (BENDROFLUMETHIAZIDE) [Concomitant]
  4. LOSARTAN POTASSIUM [Concomitant]
  5. SOTALOL HCL [Concomitant]
  6. SIMVASTATIN [Concomitant]
  7. DILTIAZEM [Suspect]
     Indication: PRODUCT USED FOR UNKNOWN INDICATION
     Dosage: 200 MG;PO;QD
     Dates: start: 20101006, end: 20111104
  8. ASPIRIN [Concomitant]
  9. BISOPROLOL FUMARATE [Suspect]
     Indication: PRODUCT USED FOR UNKNOWN INDICATION
     Dates: start: 20101001, end: 20101006
  10. TARAXCUM OFFICINALE (TARAXACUM OFFICINALE) [Concomitant]
  11. DILTIAZEM HYDROCHLORIDE [Suspect]
     Dosage: PO
     Route: 048
     Dates: start: 20101006, end: 20101104
  12. CHAPARRAL DANDELION BLEND (CHAPARRAL DANDELION BLEND) [Concomitant]
  13. INDAPAMIDE [Concomitant]
  14. MEBEVERINE (MEBEVERINE) [Concomitant]

REACTIONS (8)
  - VISUAL IMPAIRMENT [None]
  - NAUSEA [None]
  - DIZZINESS [None]
  - VISION BLURRED [None]
  - BLOOD PRESSURE INCREASED [None]
  - DRUG HYPERSENSITIVITY [None]
  - VERTIGO [None]
  - HYPOAESTHESIA [None]
